FAERS Safety Report 4846638-9 (Version None)
Quarter: 2005Q4

REPORT INFORMATION
  Report Type: 
  Country: None (occurrence: None)
  Receive Date: 20051202
  Receipt Date: 20051124
  Transmission Date: 20060501
  Serious: Yes (Other)
  Sender: FDA-Public Use
  Company Number: 200510795BNE

PATIENT
  Age: 74 Year
  Sex: Male

DRUGS (3)
  1. ASPIRIN [Suspect]
  2. CLOPIDOGREL [Suspect]
  3. ANGIOX (BIVALIRUDIN) [Suspect]
     Dosage: ONCE, INTRAVENOUS BOLUS
     Route: 040

REACTIONS (2)
  - MYOCARDIAL INFARCTION [None]
  - THROMBOSIS [None]
